FAERS Safety Report 9257384 (Version 1)
Quarter: 2013Q2

REPORT INFORMATION
  Report Type: Spontaneous
  Country: ES (occurrence: None)
  Receive Date: 20130418
  Receipt Date: 20130418
  Transmission Date: 20140414
  Serious: Yes (Hospitalization)
  Sender: FDA-Public Use
  Company Number: IMP_06667_2013

PATIENT
  Age: 70 Year
  Sex: Male

DRUGS (4)
  1. OMEPRAZOLE [Suspect]
     Indication: PRODUCT USED FOR UNKNOWN INDICATION
     Dosage: 20-40 MG, DAILY, OCCASIONALLY
     Dates: start: 1998, end: 2002
  2. CALCIUM [Concomitant]
  3. MAGNESIUM [Concomitant]
  4. CALCITRIOL [Concomitant]

REACTIONS (2)
  - Hypomagnesaemia [None]
  - Hypocalcaemia [None]
